FAERS Safety Report 25705138 (Version 1)
Quarter: 2025Q3

REPORT INFORMATION
  Report Type: Spontaneous
  Country: RU (occurrence: RU)
  Receive Date: 20250820
  Receipt Date: 20250820
  Transmission Date: 20251021
  Serious: Yes (Other)
  Sender: BAYER HEALTHCARE PHARMACEUTICALS INC.
  Company Number: RU-BAYER-2025A109110

PATIENT
  Sex: Female

DRUGS (1)
  1. DIENOGEST\ESTRADIOL VALERATE [Suspect]
     Active Substance: DIENOGEST\ESTRADIOL VALERATE
     Indication: Endometriosis
     Route: 048

REACTIONS (8)
  - Hallucination [Recovering/Resolving]
  - Intermenstrual bleeding [Recovering/Resolving]
  - Abdominal pain lower [Recovering/Resolving]
  - Herpes virus infection [Recovering/Resolving]
  - Calculus urinary [Recovering/Resolving]
  - Crying [Recovering/Resolving]
  - Suspected product quality issue [None]
  - Product use in unapproved indication [None]
